FAERS Safety Report 7350884-2 (Version None)
Quarter: 2011Q1

REPORT INFORMATION
  Report Type: 
  Country: None (occurrence: None)
  Receive Date: 20110314
  Receipt Date: 20110309
  Transmission Date: 20110831
  Serious: No
  Sender: FDA-Public Use
  Company Number: US-PFIZER INC-2011052639

PATIENT
  Sex: Male

DRUGS (2)
  1. LYRICA [Suspect]
     Indication: INITIAL INSOMNIA
  2. LYRICA [Suspect]
     Indication: PAIN
     Dosage: 25 MG, 1X/DAY
     Route: 048
     Dates: start: 20070101

REACTIONS (6)
  - EUPHORIC MOOD [None]
  - SOMNOLENCE [None]
  - PRURITUS [None]
  - FEELING ABNORMAL [None]
  - HYPOAESTHESIA [None]
  - PARAESTHESIA [None]
